FAERS Safety Report 5273350-7 (Version None)
Quarter: 2007Q1

REPORT INFORMATION
  Report Type: 
  Country: None (occurrence: None)
  Receive Date: 20070319
  Receipt Date: 20070302
  Transmission Date: 20070707
  Serious: Yes (Other)
  Sender: FDA-Public Use
  Company Number: DSA_29549_2007

PATIENT
  Age: 42 Year
  Sex: Male

DRUGS (12)
  1. TEMESTA [Suspect]
     Dosage: 5 MG Q DAY PO
     Route: 048
  2. KEPPRA [Suspect]
     Indication: EPILEPSY
     Dosage: 500 MG BID PO
     Route: 048
     Dates: start: 20061123, end: 20061207
  3. KEPPRA [Suspect]
     Indication: EPILEPSY
     Dosage: 750 MG BID PO
     Route: 048
     Dates: start: 20061208, end: 20061212
  4. KEPPRA [Suspect]
     Indication: EPILEPSY
     Dosage: DF PO
     Route: 048
     Dates: start: 20061213, end: 20061229
  5. LISINOPRIL [Suspect]
     Dosage: 5 MG Q DAY PO
     Route: 048
     Dates: start: 20060301, end: 20061213
  6. BELOC /00376902/ [Suspect]
     Dosage: 50 MG Q DAY PO
     Route: 048
  7. DORMICUM /00634102/ [Suspect]
     Dosage: 30 MG Q DAY PO
     Route: 048
  8. PLAVIX [Suspect]
     Dosage: 75 MG Q DAY PO
     Route: 048
  9. PRAZINE /00049902/ [Suspect]
     Dosage: 100 MG Q DAY PO
     Route: 048
  10. ROHYPNOL [Suspect]
     Dosage: 1 MG Q DAY PO
     Route: 048
  11. SUBUTEX [Suspect]
     Dosage: 1 MG Q DAY PO
     Route: 048
  12. SELIPRAN [Concomitant]

REACTIONS (4)
  - DRUG INTERACTION [None]
  - DRUG INTOLERANCE [None]
  - HALLUCINATION [None]
  - PARANOIA [None]
